FAERS Safety Report 11054998 (Version 1)
Quarter: 2015Q2

REPORT INFORMATION
  Report Type: Spontaneous
  Country: US (occurrence: US)
  Receive Date: 20150422
  Receipt Date: 20150422
  Transmission Date: 20150821
  Serious: No
  Sender: FDA-Public Use
  Company Number: US-SA-2014SA056732

PATIENT
  Sex: Male

DRUGS (1)
  1. LOVENOX [Suspect]
     Active Substance: ENOXAPARIN SODIUM
     Indication: DEEP VEIN THROMBOSIS
     Dosage: ROUTE:SUB Q
     Route: 058

REACTIONS (7)
  - Fatigue [Unknown]
  - Fall [Unknown]
  - Dizziness [Unknown]
  - Increased appetite [Unknown]
  - Hallucination [Unknown]
  - Abdominal pain [Unknown]
  - Dyspnoea [Unknown]
